FAERS Safety Report 10233450 (Version 1)
Quarter: 2014Q2

REPORT INFORMATION
  Report Type: Spontaneous
  Country: US (occurrence: None)
  Receive Date: 20140611
  Receipt Date: 20140611
  Transmission Date: 20141212
  Serious: No
  Sender: FDA-Public Use
  Company Number: None

PATIENT
  Age: 75 Year
  Sex: Male

DRUGS (2)
  1. EXJADE 500MG NOVARTIS [Suspect]
     Indication: IRON OVERLOAD
     Route: 048
     Dates: start: 20120613, end: 20140520
  2. EXJADE 250MG NOVARTIS [Suspect]
     Dosage: LOT# F0039?EXP DATE?11/30/2016

REACTIONS (1)
  - Diarrhoea [None]
